FAERS Safety Report 6302311-1 (Version None)
Quarter: 2009Q3

REPORT INFORMATION
  Report Type: 
  Country: None (occurrence: None)
  Receive Date: 20090810
  Receipt Date: 20090729
  Transmission Date: 20100115
  Serious: Yes (Disabling, Other)
  Sender: FDA-Public Use
  Company Number: US-PFIZER INC-2009249514

PATIENT
  Sex: Female
  Weight: 60.327 kg

DRUGS (1)
  1. LIPITOR [Suspect]
     Indication: BLOOD CHOLESTEROL INCREASED
     Route: 048
     Dates: start: 20080101, end: 20080101

REACTIONS (3)
  - MUSCULAR WEAKNESS [None]
  - PHYSICAL DISABILITY [None]
  - RENAL DISORDER [None]
